FAERS Safety Report 6884842-9 (Version None)
Quarter: 2010Q3

REPORT INFORMATION
  Report Type: 
  Country: None (occurrence: None)
  Receive Date: 20100729
  Receipt Date: 20071127
  Transmission Date: 20110219
  Serious: Yes (Other)
  Sender: FDA-Public Use
  Company Number: US-PFIZER INC-2007082515

PATIENT
  Sex: Female

DRUGS (2)
  1. QUINAPRIL HCL [Suspect]
     Indication: HYPERTENSION
     Route: 048
  2. CLINDAMYCIN HYDROCHLORIDE [Suspect]
     Route: 048

REACTIONS (1)
  - HYPERSENSITIVITY [None]
